FAERS Safety Report 5787596-2 (Version None)
Quarter: 2008Q2

REPORT INFORMATION
  Report Type: 
  Country: None (occurrence: None)
  Receive Date: 20080625
  Receipt Date: 20080620
  Transmission Date: 20081010
  Serious: Yes (Hospitalization)
  Sender: FDA-Public Use
  Company Number: JP-MERCK-0806USA01401

PATIENT
  Age: 43 Year
  Sex: Female

DRUGS (4)
  1. DECADRON [Suspect]
     Indication: COLON CANCER
     Route: 048
  2. OXALIPLATIN [Suspect]
     Indication: COLON CANCER
     Route: 041
  3. LEUCOVORIN CALCIUM [Suspect]
     Indication: COLON CANCER
     Route: 065
  4. FLUOROURACIL [Suspect]
     Indication: COLON CANCER
     Route: 065

REACTIONS (1)
  - REVERSIBLE POSTERIOR LEUKOENCEPHALOPATHY SYNDROME [None]
